FAERS Safety Report 24032865 (Version 1)
Quarter: 2024Q3

REPORT INFORMATION
  Report Type: Spontaneous
  Country: CN (occurrence: CN)
  Receive Date: 20240701
  Receipt Date: 20240701
  Transmission Date: 20241017
  Serious: Yes (Other)
  Sender: SANOFI AVENTIS
  Company Number: CN-SA-SAC20240624000036

PATIENT
  Age: 57 Year
  Sex: Female
  Weight: 52 kg

DRUGS (4)
  1. OXALIPLATIN [Suspect]
     Active Substance: OXALIPLATIN
     Indication: Colon cancer
     Dosage: 160 MG, Q3W
     Route: 041
     Dates: start: 20240124, end: 20240508
  2. OXALIPLATIN [Suspect]
     Active Substance: OXALIPLATIN
     Dosage: 160 MG, Q3W
     Route: 041
     Dates: start: 20240607, end: 20240607
  3. XELODA [Concomitant]
     Active Substance: CAPECITABINE
     Indication: Colon cancer
     Dosage: 1.5 G, BID
     Route: 048
     Dates: start: 20240124, end: 20240508
  4. XELODA [Concomitant]
     Active Substance: CAPECITABINE
     Dosage: 1.5 G, BID
     Route: 048
     Dates: start: 20240607, end: 20240614

REACTIONS (9)
  - Hepatic failure [Recovering/Resolving]
  - Renal failure [Recovering/Resolving]
  - Myelosuppression [Recovering/Resolving]
  - Oropharyngeal discomfort [Recovering/Resolving]
  - Rhinorrhoea [Recovering/Resolving]
  - Lacrimation increased [Recovering/Resolving]
  - Skin discolouration [Recovering/Resolving]
  - Cough [Recovering/Resolving]
  - Dyspnoea [Recovering/Resolving]

NARRATIVE: CASE EVENT DATE: 20240101
